FAERS Safety Report 25877218 (Version 1)
Quarter: 2025Q4

REPORT INFORMATION
  Report Type: Spontaneous
  Country: US (occurrence: US)
  Receive Date: 20251003
  Receipt Date: 20251003
  Transmission Date: 20260118
  Serious: Yes (Death, Hospitalization)
  Sender: SHILPA MEDICARE
  Company Number: US-KOANAAP-SML-US-2025-00471

PATIENT
  Age: 63 Year
  Sex: Male

DRUGS (3)
  1. AZACITIDINE [Suspect]
     Active Substance: AZACITIDINE
     Indication: Acute myeloid leukaemia
     Dosage: A 28-DAY CYCLE OF INDUCTION CHEMOTHERAPY
  2. VENETOCLAX [Suspect]
     Active Substance: VENETOCLAX
     Indication: Acute myeloid leukaemia
     Dosage: A 28-DAY CYCLE OF INDUCTION CHEMOTHERAPY
  3. METHOTREXATE [Suspect]
     Active Substance: METHOTREXATE
     Indication: Prophylaxis
     Dosage: FOR CNS PROPHYLAXIS SIX DAYS FOLLOWING THERAPY COMPLETION
     Route: 037

REACTIONS (17)
  - Encephalopathy [Fatal]
  - Subdural haematoma [Fatal]
  - Multiple organ dysfunction syndrome [Fatal]
  - Acute hepatic failure [Fatal]
  - Disseminated intravascular coagulation [Fatal]
  - Acute kidney injury [Fatal]
  - Cerebral infarction [Fatal]
  - Neurological decompensation [Fatal]
  - Lactic acidosis [Fatal]
  - Monocytosis [Fatal]
  - Chloroma [Fatal]
  - Disorientation [Fatal]
  - Splenic artery thrombosis [Unknown]
  - Coeliac artery occlusion [Unknown]
  - Chest pain [Unknown]
  - Pancytopenia [Unknown]
  - Tumour lysis syndrome [Fatal]
